FAERS Safety Report 21001142 (Version 1)
Quarter: 2022Q2

REPORT INFORMATION
  Report Type: Spontaneous
  Country: US (occurrence: US)
  Receive Date: 20220624
  Receipt Date: 20220624
  Transmission Date: 20220721
  Serious: No
  Sender: FDA-Public Use
  Company Number: US-BioHaven Pharmaceuticals-2022BHV000771

PATIENT
  Age: 47 Year
  Sex: Female

DRUGS (1)
  1. NURTEC ODT [Suspect]
     Active Substance: RIMEGEPANT SULFATE
     Indication: Migraine
     Dosage: PATIENT STATED THAT SHE HAS BEEN TRYING IT SINCE JULY WHEN DR. ROBINSON PRESCRIBED IT, AND SHE WAS H
     Route: 048
     Dates: start: 202109, end: 20220221

REACTIONS (1)
  - Drug ineffective [Unknown]
